FAERS Safety Report 21433719 (Version 1)
Quarter: 2022Q4

REPORT INFORMATION
  Report Type: Spontaneous
  Country: US (occurrence: US)
  Receive Date: 20221010
  Receipt Date: 20221010
  Transmission Date: 20230113
  Serious: Yes (Other)
  Sender: FDA-Public Use
  Company Number: US-KOREA IPSEN Pharma-2022-27468

PATIENT
  Sex: Female

DRUGS (1)
  1. SOMATULINE DEPOT [Suspect]
     Active Substance: LANREOTIDE ACETATE
     Indication: Product used for unknown indication
     Dosage: INJECT 90MG INTO THE MUSCLE EVERY 6 WEEKS
     Route: 030

REACTIONS (4)
  - Renal failure [Unknown]
  - Blood potassium increased [Unknown]
  - Seasonal allergy [Unknown]
  - Off label use [Unknown]
